FAERS Safety Report 5808432 (Version 3)
Quarter: 2015Q4

REPORT INFORMATION
  Report Type: Spontaneous
  Country: US (occurrence: US)
  Receive Date: 20050531
  Receipt Date: 20151028
  Transmission Date: 20160305
  Serious: Yes (Other)
  Sender: FDA-Public Use
  Company Number: PHEH2005US03698

PATIENT
  Age: 57 Year
  Sex: Male

DRUGS (2)
  1. RITALIN LA [Suspect]
     Active Substance: METHYLPHENIDATE HYDROCHLORIDE
     Indication: ATTENTION DEFICIT/HYPERACTIVITY DISORDER
     Dosage: 30 MG, QD
     Route: 048
  2. CLARINEX [Concomitant]
     Active Substance: DESLORATADINE
     Indication: PRODUCT USED FOR UNKNOWN INDICATION
     Route: 065

REACTIONS (7)
  - Suicidal ideation [Recovered/Resolved]
  - Feeling of despair [Recovered/Resolved]
  - Drug ineffective [Recovered/Resolved]
  - Impulsive behaviour [Recovered/Resolved]
  - Feeling jittery [Recovered/Resolved]
  - Hallucination, auditory [Recovered/Resolved]
  - Withdrawal syndrome [Recovered/Resolved]

NARRATIVE: CASE EVENT DATE: 19320322
